FAERS Safety Report 8168559-9 (Version None)
Quarter: 2012Q1

REPORT INFORMATION
  Report Type: 
  Country: None (occurrence: None)
  Receive Date: 20120227
  Receipt Date: 20120227
  Transmission Date: 20120608
  Serious: Yes (Other)
  Sender: FDA-Public Use
  Company Number: None

PATIENT
  Sex: Female
  Weight: 52.163 kg

DRUGS (5)
  1. LORAZEPAM [Concomitant]
  2. LAMOTRIGINE [Suspect]
     Indication: BIPOLAR II DISORDER
     Dosage: 50.0 MG
     Route: 048
     Dates: start: 20120202, end: 20120226
  3. WELLBUTRIN [Concomitant]
  4. ZOLOFT [Concomitant]
     Route: 048
  5. KLONOPIN [Concomitant]

REACTIONS (2)
  - WEIGHT DECREASED [None]
  - EAR DISCOMFORT [None]
